FAERS Safety Report 4388706-4 (Version None)
Quarter: 2004Q2

REPORT INFORMATION
  Report Type: 
  Country: None (occurrence: None)
  Receive Date: 20040624
  Receipt Date: 20040611
  Transmission Date: 20050107
  Serious: Yes (Death)
  Sender: FDA-Public Use
  Company Number: 2004-BP-03763RP

PATIENT
  Age: 81 Year
  Sex: Female

DRUGS (1)
  1. MICARDIS HCT [Suspect]
     Indication: HYPERTENSION
     Dosage: 40 MG, 1 TA OD) PO
     Route: 048
     Dates: start: 20030704

REACTIONS (1)
  - PNEUMONIA [None]
